FAERS Safety Report 4519517-4 (Version None)
Quarter: 2004Q4

REPORT INFORMATION
  Report Type: 
  Country: None (occurrence: None)
  Receive Date: 20041101
  Receipt Date: 20040323
  Transmission Date: 20050328
  Serious: Yes (Other)
  Sender: FDA-Public Use
  Company Number: HQWYE069224MAR04

PATIENT
  Age: 83 Year
  Sex: Female
  Weight: 58.57 kg

DRUGS (6)
  1. PREMARIN [Suspect]
     Indication: OESTROGEN REPLACEMENT THERAPY
     Dosage: 0.625MG DAILY, ORAL
     Route: 048
     Dates: start: 19500101, end: 20040101
  2. LISINOPRIL [Concomitant]
  3. ATENOLOL [Concomitant]
  4. HYDROCHLOROTHIAZIDE [Concomitant]
  5. IBUPROFEN [Concomitant]
  6. VICODIN [Concomitant]

REACTIONS (2)
  - ALOPECIA [None]
  - RESTLESS LEGS SYNDROME [None]
